FAERS Safety Report 9840933 (Version 1)
Quarter: 2014Q1

REPORT INFORMATION
  Report Type: Spontaneous
  Country: IT (occurrence: IT)
  Receive Date: 20140124
  Receipt Date: 20140124
  Transmission Date: 20141002
  Serious: Yes (Other)
  Sender: FDA-Public Use
  Company Number: IT-TEVA-457683ISR

PATIENT
  Age: 70 Year
  Sex: Female

DRUGS (1)
  1. METOTRESSATO TEVA [Suspect]
     Indication: BREAST CANCER
     Dosage: 70 MILLIGRAM DAILY;
     Route: 042
     Dates: start: 20140116, end: 20140116

REACTIONS (2)
  - Chest discomfort [Recovered/Resolved]
  - Dyspnoea [Recovered/Resolved]
